FAERS Safety Report 6773117-4 (Version None)
Quarter: 2010Q2

REPORT INFORMATION
  Report Type: 
  Country: None (occurrence: None)
  Receive Date: 20100616
  Receipt Date: 20100604
  Transmission Date: 20101027
  Serious: Yes (Hospitalization, Other)
  Sender: FDA-Public Use
  Company Number: US-ELI_LILLY_AND_COMPANY-US201005004470

PATIENT
  Age: 87 Year
  Sex: Female

DRUGS (2)
  1. FORTEO [Suspect]
     Indication: OSTEOPOROSIS
     Dosage: 20 UG, DAILY (1/D)
     Dates: end: 20091211
  2. ASPIRIN [Concomitant]
     Dosage: UNK, DAILY (1/D)

REACTIONS (3)
  - FOREIGN BODY [None]
  - OESOPHAGEAL PERFORATION [None]
  - OESOPHAGEAL STENOSIS [None]
